FAERS Safety Report 18136796 (Version 2)
Quarter: 2020Q3

REPORT INFORMATION
  Report Type: Spontaneous
  Country: US (occurrence: US)
  Receive Date: 20200811
  Receipt Date: 20200814
  Transmission Date: 20201103
  Serious: No
  Sender: FDA-Public Use
  Company Number: US-PFIZER INC-2020306014

PATIENT
  Age: 67 Year
  Sex: Male
  Weight: 114.31 kg

DRUGS (1)
  1. SILDENAFIL CITRATE. [Suspect]
     Active Substance: SILDENAFIL CITRATE
     Indication: ERECTILE DYSFUNCTION
     Dosage: UNK (4?5 TABLETS, ALL THE WAY UP 10 20 MG TABLETS, AT ONE TIME)

REACTIONS (2)
  - Intentional overdose [Unknown]
  - Drug ineffective [Unknown]
